FAERS Safety Report 13143978 (Version 1)
Quarter: 2017Q1

REPORT INFORMATION
  Report Type: Spontaneous
  Country: US (occurrence: US)
  Receive Date: 20170124
  Receipt Date: 20170124
  Transmission Date: 20170509
  Serious: Yes (Hospitalization)
  Sender: FDA-Public Use
  Company Number: None

PATIENT
  Age: 70 Year
  Sex: Male
  Weight: 117.7 kg

DRUGS (1)
  1. LOSARTAN. [Suspect]
     Active Substance: LOSARTAN
     Indication: HYPERTENSION
     Route: 048
     Dates: start: 20151203, end: 20161208

REACTIONS (7)
  - Dysphonia [None]
  - Diarrhoea [None]
  - Swollen tongue [None]
  - Dyspnoea [None]
  - Salivary hypersecretion [None]
  - Dysphagia [None]
  - Local swelling [None]

NARRATIVE: CASE EVENT DATE: 20161208
